FAERS Safety Report 8587004-2 (Version None)
Quarter: 2012Q3

REPORT INFORMATION
  Report Type: 
  Country: None (occurrence: None)
  Receive Date: 20120810
  Receipt Date: 20120808
  Transmission Date: 20120928
  Serious: Yes (Life-Threatening, Hospitalization)
  Sender: FDA-Public Use
  Company Number: JP-ABBOTT-12P-087-0958189-00

PATIENT
  Sex: Male
  Weight: 90 kg

DRUGS (6)
  1. LOMOXICAM [Concomitant]
     Indication: PAIN
     Route: 048
     Dates: start: 20101008, end: 20110930
  2. HUMIRA [Suspect]
     Dosage: 40 MG ON AN IRREGULAR BASIS
     Dates: end: 20110930
  3. MAXACALCITOL [Concomitant]
     Indication: PSORIASIS
     Route: 061
     Dates: start: 20100924, end: 20110930
  4. CLOBETASOL PROPIONATE [Concomitant]
     Indication: PSORIASIS
     Route: 061
     Dates: start: 20100924, end: 20110930
  5. REBAMIPIDE [Concomitant]
     Indication: PRODUCT USED FOR UNKNOWN INDICATION
     Route: 048
     Dates: start: 20101008, end: 20110930
  6. HUMIRA [Suspect]
     Indication: PSORIATIC ARTHROPATHY
     Dates: start: 20101021, end: 20101021

REACTIONS (1)
  - GASTROINTESTINAL AMYLOIDOSIS [None]
